FAERS Safety Report 8853406 (Version 2)
Quarter: 2012Q4

REPORT INFORMATION
  Report Type: 
  Country: US (occurrence: US)
  Receive Date: 20121022
  Receipt Date: 20121207
  Transmission Date: 20130627
  Serious: Yes (Other)
  Sender: FDA-Public Use
  Company Number: US-PFIZER INC-2012261397

PATIENT
  Age: 56 Year
  Sex: Female
  Weight: 79 kg

DRUGS (5)
  1. NEURONTIN [Suspect]
     Indication: NEUROPATHY
     Dosage: 900 mg(one and half tablet of 600mg), 3x/day
     Route: 048
     Dates: start: 2005
  2. NEURONTIN [Suspect]
     Indication: DIABETIC NEUROPATHY
  3. PLAVIX [Concomitant]
     Dosage: UNK
  4. HUMULIN [Concomitant]
     Dosage: 70/30 units, UNK
  5. ASPIRIN [Concomitant]
     Dosage: UNK

REACTIONS (4)
  - Fall [Unknown]
  - Lower limb fracture [Recovered/Resolved]
  - Arthropathy [Unknown]
  - Sensory loss [Unknown]
